FAERS Safety Report 10693714 (Version 1)
Quarter: 2015Q1

REPORT INFORMATION
  Report Type: Spontaneous
  Country: GB (occurrence: GB)
  Receive Date: 20150106
  Receipt Date: 20150106
  Transmission Date: 20150721
  Serious: Yes (Other)
  Sender: FDA-Public Use
  Company Number: PHHY2014GB170520

PATIENT
  Age: 39 Year
  Sex: Female
  Weight: 61 kg

DRUGS (3)
  1. AMOXICILLIN. [Suspect]
     Active Substance: AMOXICILLIN
     Indication: BACTERIAL INFECTION
     Dosage: 250 MG, TID
     Route: 048
     Dates: start: 20141125
  2. LANSOPRAZOLE. [Suspect]
     Active Substance: LANSOPRAZOLE
     Indication: GASTROOESOPHAGEAL REFLUX DISEASE
     Dosage: 30 MG, BID
     Route: 048
     Dates: start: 20141120
  3. METRONIDAZOLE. [Suspect]
     Active Substance: METRONIDAZOLE
     Indication: BACTERIAL INFECTION
     Dosage: 400 MG, TID
     Route: 065
     Dates: start: 20141125

REACTIONS (8)
  - Back pain [Recovered/Resolved]
  - Sneezing [Recovering/Resolving]
  - Cough [Recovering/Resolving]
  - Secretion discharge [Recovering/Resolving]
  - Dizziness [Recovered/Resolved with Sequelae]
  - Throat tightness [Recovering/Resolving]
  - Neck pain [Recovering/Resolving]
  - Nausea [Recovering/Resolving]

NARRATIVE: CASE EVENT DATE: 20141125
